FAERS Safety Report 7524521-8 (Version None)
Quarter: 2011Q2

REPORT INFORMATION
  Report Type: 
  Country: None (occurrence: None)
  Receive Date: 20110606
  Receipt Date: 20110531
  Transmission Date: 20111010
  Serious: Yes (Other)
  Sender: FDA-Public Use
  Company Number: US-BAYER-2011-047208

PATIENT
  Age: 37 Year
  Sex: Female

DRUGS (2)
  1. YAZ [Suspect]
     Dosage: UNK
     Dates: start: 20060501, end: 20070327
  2. YASMIN [Suspect]
     Dosage: UNK
     Dates: start: 20060501, end: 20070327

REACTIONS (7)
  - PULMONARY EMBOLISM [None]
  - DEEP VEIN THROMBOSIS [None]
  - PAIN [None]
  - INJURY [None]
  - PSYCHIATRIC SYMPTOM [None]
  - EMOTIONAL DISTRESS [None]
  - ANXIETY [None]
